FAERS Safety Report 14362860 (Version 2)
Quarter: 2019Q1

REPORT INFORMATION
  Report Type: Spontaneous
  Country: US (occurrence: US)
  Receive Date: 20180108
  Receipt Date: 20190108
  Transmission Date: 20190417
  Serious: No
  Sender: FDA-Public Use
  Company Number: US-JNJFOC-20171210130

PATIENT
  Age: 46 Year
  Sex: Male
  Weight: 99.79 kg

DRUGS (2)
  1. STELARA [Suspect]
     Active Substance: USTEKINUMAB
     Indication: PSORIASIS
     Route: 058
     Dates: start: 2015
  2. ALEVE [Concomitant]
     Active Substance: NAPROXEN SODIUM
     Route: 065

REACTIONS (4)
  - Syringe issue [Unknown]
  - Product dose omission [Unknown]
  - Product packaging issue [Unknown]
  - Accidental exposure to product [Unknown]

NARRATIVE: CASE EVENT DATE: 20171206
